FAERS Safety Report 10011552 (Version 1)
Quarter: 2014Q1

REPORT INFORMATION
  Report Type: Spontaneous
  Country: JP (occurrence: JP)
  Receive Date: 20140314
  Receipt Date: 20140314
  Transmission Date: 20141002
  Serious: Yes (Other)
  Sender: FDA-Public Use
  Company Number: JP-ASTELLAS-2014JP002255

PATIENT
  Age: 26 Year
  Sex: Male

DRUGS (7)
  1. PROGRAF [Suspect]
     Indication: PROPHYLAXIS AGAINST GRAFT VERSUS HOST DISEASE
     Route: 065
  2. PROGRAF [Suspect]
     Indication: CHRONIC GRAFT VERSUS HOST DISEASE
     Route: 065
  3. METHOTREXATE [Concomitant]
     Indication: PROPHYLAXIS AGAINST GRAFT VERSUS HOST DISEASE
     Route: 065
  4. FLUDARABINE PHOSPHATE [Concomitant]
     Indication: PREMEDICATION
     Dosage: 30 MG/M2, UNKNOWN/D
     Route: 048
  5. BUSULFAN [Concomitant]
     Indication: PREMEDICATION
     Dosage: 3.2 MG/KG, UNKNOWN/D
     Route: 042
  6. ALKERAN                            /00006401/ [Concomitant]
     Indication: PREMEDICATION
     Dosage: 70 MG/M2, UNKNOWN/D
     Route: 048
  7. ANTITHYMOCYTE IMMUNOGLOBULIN (RABBIT) [Concomitant]
     Indication: PREMEDICATION
     Dosage: 2.5 MG/KG, UNKNOWN/D
     Route: 041

REACTIONS (3)
  - Drug ineffective [Unknown]
  - Acute graft versus host disease in skin [Recovering/Resolving]
  - Post transplant lymphoproliferative disorder [Recovering/Resolving]
